FAERS Safety Report 22264447 (Version 11)
Quarter: 2024Q3

REPORT INFORMATION
  Report Type: Report from Study
  Country: US (occurrence: US)
  Receive Date: 20230428
  Receipt Date: 20240909
  Transmission Date: 20241017
  Serious: Yes (Other)
  Sender: NOVARTIS
  Company Number: US-002147023-NVSC2023US093703

PATIENT
  Sex: Female

DRUGS (2)
  1. KESIMPTA [Suspect]
     Active Substance: OFATUMUMAB
     Indication: Product used for unknown indication
     Dosage: UNK
     Route: 065
  2. WELLBUTRIN [Concomitant]
     Active Substance: BUPROPION HYDROCHLORIDE
     Indication: Product used for unknown indication
     Dosage: UNK
     Route: 065

REACTIONS (13)
  - Neuropathy peripheral [Unknown]
  - Muscle spasms [Unknown]
  - Gastroenteritis viral [Recovering/Resolving]
  - Hypoaesthesia [Unknown]
  - Fatigue [Unknown]
  - Headache [Unknown]
  - Injection site bruising [Unknown]
  - Alopecia [Unknown]
  - Paraesthesia [Unknown]
  - Pain [Unknown]
  - Stress [Unknown]
  - Blood iron decreased [Unknown]
  - Condition aggravated [Unknown]
